FAERS Safety Report 8866295 (Version 1)
Quarter: 2012Q4

REPORT INFORMATION
  Report Type: 
  Country: US (occurrence: US)
  Receive Date: 20121025
  Receipt Date: 20121025
  Transmission Date: 20130627
  Serious: No
  Sender: FDA-Public Use
  Company Number: US-ASTRAZENECA-2012SE79015

PATIENT
  Age: 60 Year
  Sex: Male

DRUGS (4)
  1. SYMBICORT PMDI [Suspect]
     Indication: CHRONIC OBSTRUCTIVE PULMONARY DISEASE
     Dosage: 2 puffs daily
     Route: 055
  2. LANTUS [Concomitant]
  3. METFORMIN [Concomitant]
  4. SPIRIVA [Concomitant]

REACTIONS (4)
  - Diabetes mellitus [Unknown]
  - Wheezing [Unknown]
  - Circumstance or information capable of leading to medication error [Unknown]
  - Drug dose omission [Unknown]
